FAERS Safety Report 25145444 (Version 2)
Quarter: 2025Q2

REPORT INFORMATION
  Report Type: Spontaneous
  Country: TW (occurrence: TW)
  Receive Date: 20250401
  Receipt Date: 20250416
  Transmission Date: 20250717
  Serious: No
  Sender: BAYER
  Company Number: TW-BAYER-2025A043506

PATIENT
  Age: 77 Year
  Sex: Male

DRUGS (1)
  1. KERENDIA [Suspect]
     Active Substance: FINERENONE
     Route: 048
     Dates: start: 2024

REACTIONS (1)
  - Liver disorder [None]

NARRATIVE: CASE EVENT DATE: 20250321
